FAERS Safety Report 5878234-9 (Version None)
Quarter: 2008Q3

REPORT INFORMATION
  Report Type: 
  Country: None (occurrence: None)
  Receive Date: 20080909
  Receipt Date: 20080909
  Transmission Date: 20090109
  Serious: Yes (Hospitalization)
  Sender: FDA-Public Use
  Company Number: None

PATIENT
  Sex: Female

DRUGS (1)
  1. LITHOBID [Suspect]
     Dosage: 600 MG DAILY

REACTIONS (2)
  - CHEST PAIN [None]
  - DYSPEPSIA [None]
